FAERS Safety Report 8424937-1 (Version None)
Quarter: 2012Q2

REPORT INFORMATION
  Report Type: 
  Country: None (occurrence: None)
  Receive Date: 20120611
  Receipt Date: 20120604
  Transmission Date: 20120825
  Serious: No
  Sender: FDA-Public Use
  Company Number: US-PFIZER INC-2012091288

PATIENT
  Sex: Female
  Weight: 63.492 kg

DRUGS (3)
  1. IBUPROFEN (ADVIL) [Suspect]
     Dosage: 2-3 CAPSULES PER DAY
     Route: 048
     Dates: start: 20120405, end: 20120405
  2. IBUPROFEN (ADVIL) [Suspect]
     Indication: PAIN
     Dosage: 2-3 CAPSULES PER DAY
     Route: 048
     Dates: start: 20120401, end: 20120401
  3. IBUPROFEN (ADVIL) [Suspect]
     Indication: PYREXIA
     Dosage: 2-3 CAPSULES PER DAY
     Route: 048
     Dates: start: 20120404, end: 20120404

REACTIONS (1)
  - DRUG INEFFECTIVE [None]
